FAERS Safety Report 12945759 (Version 1)
Quarter: 2016Q4

REPORT INFORMATION
  Report Type: Spontaneous
  Country: US (occurrence: US)
  Receive Date: 20161115
  Receipt Date: 20161115
  Transmission Date: 20170207
  Serious: No
  Sender: FDA-Public Use
  Company Number: US-SHIRE-US201617235

PATIENT
  Sex: Male

DRUGS (1)
  1. ELAPRASE [Suspect]
     Active Substance: IDURSULFASE
     Indication: MUCOPOLYSACCHARIDOSIS II
     Dosage: 24 MG, 1X/WEEK (EVERY WEEK)
     Route: 041
     Dates: start: 201510

REACTIONS (3)
  - General physical health deterioration [Unknown]
  - Treatment noncompliance [Unknown]
  - Respiratory disorder [Unknown]
